FAERS Safety Report 8918255 (Version 1)
Quarter: 2012Q4

REPORT INFORMATION
  Report Type: 
  Country: CO (occurrence: CO)
  Receive Date: 20121120
  Receipt Date: 20121120
  Transmission Date: 20130627
  Serious: Yes (Other)
  Sender: FDA-Public Use
  Company Number: CO-PFIZER INC-2012290996

PATIENT
  Age: 69 Year
  Sex: Female

DRUGS (6)
  1. LYRICA [Suspect]
     Indication: PAIN IN ARM
     Dosage: 150 mg, UNK
     Route: 065
     Dates: start: 2011
  2. LANTUS [Concomitant]
     Indication: DIABETES
     Dosage: 10 IU, 1x/day (at night)
     Route: 058
     Dates: start: 2010
  3. VERAPAMIL [Concomitant]
     Indication: HYPERTENSION
     Dosage: one tablet at 120 mg, 2x/day
     Route: 048
     Dates: start: 2007
  4. LOSARTAN [Concomitant]
     Indication: HYPERTENSION
     Dosage: one tablet at 10 mg, 2x/day
     Route: 048
     Dates: start: 2007
  5. FERROUS SULFATE [Concomitant]
     Route: 065
  6. ERYTHROPOIETIN [Concomitant]
     Dosage: UNK
     Route: 058

REACTIONS (1)
  - Neoplasm malignant [Unknown]
